FAERS Safety Report 11167609 (Version 2)
Quarter: 2015Q3

REPORT INFORMATION
  Report Type: Spontaneous
  Country: RU (occurrence: RU)
  Receive Date: 20150605
  Receipt Date: 20150709
  Transmission Date: 20151125
  Serious: Yes (Other)
  Sender: FDA-Public Use
  Company Number: RU-PFIZER INC-2015184847

PATIENT
  Age: 42 Year
  Sex: Female

DRUGS (2)
  1. DOSTINEX [Suspect]
     Active Substance: CABERGOLINE
     Dosage: 7 DF, SINGLE
     Route: 048
     Dates: start: 201505, end: 201505
  2. DOSTINEX [Suspect]
     Active Substance: CABERGOLINE
     Indication: SUPPRESSED LACTATION
     Dosage: UNK
     Route: 048

REACTIONS (3)
  - Uterine haemorrhage [Recovering/Resolving]
  - Ovarian disorder [Recovered/Resolved]
  - Overdose [Recovering/Resolving]

NARRATIVE: CASE EVENT DATE: 201505
